FAERS Safety Report 9888041 (Version 1)
Quarter: 2014Q1

REPORT INFORMATION
  Report Type: Spontaneous
  Country: DK (occurrence: DK)
  Receive Date: 20140211
  Receipt Date: 20140211
  Transmission Date: 20141002
  Serious: Yes (Hospitalization)
  Sender: FDA-Public Use
  Company Number: DK-WATSON-2014-02177

PATIENT
  Age: 57 Year
  Sex: Male

DRUGS (7)
  1. SUMATRIPTAN [Suspect]
     Indication: PAIN
     Dosage: UNK
     Route: 065
  2. BURANA [Suspect]
     Indication: PAIN
     Dosage: UNK
     Route: 048
  3. PANODIL [Suspect]
     Indication: PAIN
     Dosage: UNK
     Route: 065
  4. DOLOL [Suspect]
     Indication: PAIN
     Dosage: UNK - STYRKE: 50 MG.
     Route: 048
  5. IMOCLONE [Suspect]
     Indication: PAIN
     Dosage: UNK - STYRKE: 7.5 MG.
     Route: 048
  6. DICLON /00372302/ [Suspect]
     Indication: PAIN
     Dosage: UNK
     Route: 065
  7. MANDOLGIN RETARD [Suspect]
     Indication: PAIN
     Dosage: UNK
     Route: 048

REACTIONS (3)
  - Supraventricular tachycardia [Unknown]
  - Palpitations [Unknown]
  - Non-cardiac chest pain [Unknown]
